FAERS Safety Report 8055891-2 (Version None)
Quarter: 2012Q1

REPORT INFORMATION
  Report Type: 
  Country: None (occurrence: None)
  Receive Date: 20120119
  Receipt Date: 20120106
  Transmission Date: 20120608
  Serious: Yes (Life-Threatening, Hospitalization, Other)
  Sender: FDA-Public Use
  Company Number: JP-AMGEN-US404090

PATIENT
  Age: 63 Year
  Sex: Male
  Weight: 73 kg

DRUGS (12)
  1. ISONIAZID [Concomitant]
     Indication: PROPHYLAXIS
     Dosage: UNK
     Route: 048
     Dates: start: 20080807, end: 20090811
  2. RHEUMATREX [Concomitant]
     Dosage: 6 MG, WEEKLY
     Route: 048
     Dates: start: 20080807, end: 20090303
  3. PREDNISOLONE [Concomitant]
     Indication: RHEUMATOID ARTHRITIS
     Dosage: 5 MG, 1X/DAY
     Route: 048
     Dates: end: 20080806
  4. PREDNISOLONE [Concomitant]
     Dosage: 2.5 MG, 1X/DAY
     Route: 048
     Dates: start: 20080807, end: 20090707
  5. TROXSIN [Concomitant]
     Indication: PROPHYLAXIS
     Dosage: 100 MG, 3X/DAY
     Route: 048
  6. PREDNISOLONE [Concomitant]
     Dosage: 15 MG, 1X/DAY
     Route: 048
  7. ETODOLAC [Concomitant]
     Indication: RHEUMATOID ARTHRITIS
     Dosage: 200 MG, 2X/DAY
     Route: 048
  8. RHEUMATREX [Concomitant]
     Indication: RHEUMATOID ARTHRITIS
     Dosage: 8 MG, WEEKLY
     Route: 048
     Dates: end: 20080806
  9. ETANERCEPT [Suspect]
     Indication: RHEUMATOID ARTHRITIS
     Dosage: 25 MG, 2 TIMES/WK
     Route: 058
     Dates: start: 20080731, end: 20100322
  10. PREDNISOLONE [Concomitant]
     Dosage: 10 MG, 1X/DAY
     Route: 048
     Dates: start: 20100731, end: 20100814
  11. CYTOTEC [Concomitant]
     Indication: PROPHYLAXIS
     Dosage: 200 UG, 2X/DAY
     Route: 048
  12. RHEUMATREX [Concomitant]
     Dosage: 4 MG, WEEKLY
     Route: 048
     Dates: start: 20090304, end: 20100319

REACTIONS (1)
  - LUNG NEOPLASM MALIGNANT [None]
